FAERS Safety Report 15109182 (Version 1)
Quarter: 2018Q2

REPORT INFORMATION
  Report Type: Spontaneous
  Country: US (occurrence: US)
  Receive Date: 20180611
  Receipt Date: 20180611
  Transmission Date: 20180711
  Serious: Yes (Other)
  Sender: FDA-Public Use
  Company Number: None

PATIENT
  Age: 35 Year
  Sex: Female
  Weight: 64.35 kg

DRUGS (4)
  1. WELLBUTRIN [Suspect]
     Active Substance: BUPROPION HYDROCHLORIDE
     Indication: ANXIETY
     Dosage: ?          QUANTITY:4 DF DOSAGE FORM;?
     Route: 048
     Dates: start: 20160301, end: 20171031
  2. WELLBUTRIN [Suspect]
     Active Substance: BUPROPION HYDROCHLORIDE
     Indication: DEPRESSION
     Dosage: ?          QUANTITY:4 DF DOSAGE FORM;?
     Route: 048
     Dates: start: 20160301, end: 20171031
  3. BUPROPION. [Suspect]
     Active Substance: BUPROPION
  4. SERTRALINE [Concomitant]
     Active Substance: SERTRALINE HYDROCHLORIDE

REACTIONS (5)
  - Seizure [None]
  - Stress [None]
  - Therapy cessation [None]
  - Sleep deficit [None]
  - Nutritional condition abnormal [None]

NARRATIVE: CASE EVENT DATE: 20171031
